FAERS Safety Report 6150482-2 (Version None)
Quarter: 2009Q2

REPORT INFORMATION
  Report Type: 
  Country: None (occurrence: None)
  Receive Date: 20090409
  Receipt Date: 20090401
  Transmission Date: 20091009
  Serious: Yes (Hospitalization)
  Sender: FDA-Public Use
  Company Number: US-ABBOTT-09P-163-0565782-00

PATIENT
  Sex: Male
  Weight: 115.77 kg

DRUGS (8)
  1. HUMIRA [Suspect]
     Indication: CROHN'S DISEASE
     Route: 058
     Dates: start: 20081101
  2. HUMIRA [Suspect]
     Route: 058
  3. GEODONE [Concomitant]
     Indication: INSOMNIA
  4. CLONAZEPAM [Concomitant]
     Indication: ANXIETY
  5. RIALDA [Concomitant]
     Indication: CROHN'S DISEASE
  6. AZASAN [Concomitant]
     Indication: CROHN'S DISEASE
  7. ZOLPIDEN [Concomitant]
     Indication: INSOMNIA
  8. ALLEGRA [Concomitant]
     Indication: HYPERSENSITIVITY

REACTIONS (3)
  - CHILLS [None]
  - INTESTINAL OBSTRUCTION [None]
  - NAUSEA [None]
